FAERS Safety Report 9774833 (Version 2)
Quarter: 2014Q1

REPORT INFORMATION
  Report Type: Spontaneous
  Country: US (occurrence: US)
  Receive Date: 20131220
  Receipt Date: 20140205
  Transmission Date: 20141002
  Serious: No
  Sender: FDA-Public Use
  Company Number: US-PFIZER INC-2013363250

PATIENT
  Age: 70 Year
  Sex: Female
  Weight: 56.7 kg

DRUGS (6)
  1. ESTRING [Suspect]
     Indication: VULVOVAGINAL DRYNESS
     Dosage: UNK
     Route: 067
     Dates: end: 20131217
  2. ESTRING [Suspect]
     Indication: MENOPAUSAL SYMPTOMS
  3. ESTRING [Suspect]
     Indication: PROPHYLAXIS URINARY TRACT INFECTION
  4. LIPITOR [Concomitant]
     Indication: BLOOD CHOLESTEROL INCREASED
     Dosage: UNK
  5. CALCIUM [Concomitant]
     Indication: OSTEOPOROSIS
     Dosage: UNK, 1X/DAY
  6. BABY ASPIRIN [Concomitant]
     Indication: ARRHYTHMIA SUPRAVENTRICULAR
     Dosage: 81 MG, DAILY

REACTIONS (5)
  - Product quality issue [Not Recovered/Not Resolved]
  - Vaginal discharge [Not Recovered/Not Resolved]
  - Vaginal odour [Not Recovered/Not Resolved]
  - Infection [Unknown]
  - Off label use [Unknown]
